FAERS Safety Report 13875301 (Version 2)
Quarter: 2017Q3

REPORT INFORMATION
  Report Type: Spontaneous
  Country: JP (occurrence: JP)
  Receive Date: 20170817
  Receipt Date: 20170918
  Transmission Date: 20171127
  Serious: Yes (Life-Threatening, Other)
  Sender: FDA-Public Use
  Company Number: JP-CONCORDIA PHARMACEUTICALS INC.-E2B_00008312

PATIENT
  Age: 78 Year
  Sex: Male

DRUGS (6)
  1. VINCRISTINE [Suspect]
     Active Substance: VINCRISTINE
     Indication: NEOPLASM
  2. CYCLOPHOSPHAMIDE. [Suspect]
     Active Substance: CYCLOPHOSPHAMIDE
     Indication: NEOPLASM
  3. PREDNISOLONE. [Suspect]
     Active Substance: PREDNISOLONE
     Indication: NEOPLASM
  4. PIRARUBICIN [Suspect]
     Active Substance: PIRARUBICIN
     Indication: NEOPLASM
  5. PREDNISOLONE. [Suspect]
     Active Substance: PREDNISOLONE
     Dosage: STEROID MAINTENANCE THERAPY
  6. ETOPOSIDE. [Suspect]
     Active Substance: ETOPOSIDE
     Indication: NEOPLASM

REACTIONS (5)
  - Renal salt-wasting syndrome [Recovered/Resolved]
  - Hypouricaemia [Unknown]
  - Neutropenic sepsis [Unknown]
  - Renal tubular disorder [Unknown]
  - Hypovolaemic shock [Recovered/Resolved]
